FAERS Safety Report 12090821 (Version 1)
Quarter: 2016Q1

REPORT INFORMATION
  Report Type: Spontaneous
  Country: CA (occurrence: CA)
  Receive Date: 20160218
  Receipt Date: 20160218
  Transmission Date: 20160526
  Serious: Yes (Hospitalization, Other)
  Sender: FDA-Public Use
  Company Number: CA-009507513-1602CAN007991

PATIENT
  Age: 68 Year
  Sex: Female
  Weight: 68.27 kg

DRUGS (1)
  1. FOSAMAX [Suspect]
     Active Substance: ALENDRONATE SODIUM
     Indication: OSTEOPOROSIS
     Dosage: 1 EVERY 1 WEEK
     Route: 065

REACTIONS (2)
  - Pathological fracture [Unknown]
  - Stress fracture [Unknown]
